FAERS Safety Report 10540147 (Version 1)
Quarter: 2014Q4

REPORT INFORMATION
  Report Type: Spontaneous
  Country: US (occurrence: None)
  Receive Date: 20141022
  Receipt Date: 20141022
  Transmission Date: 20150529
  Serious: Yes (Other)
  Sender: FDA-Public Use
  Company Number: B1028934A

PATIENT
  Age: 52 Year
  Sex: Male
  Weight: 76 kg

DRUGS (9)
  1. ALDACTONE (ALDACTONE (NOS)) [Concomitant]
  2. ZEFFIX [Suspect]
     Active Substance: LAMIVUDINE
     Indication: PRODUCT USED FOR UNKNOWN INDICATION
     Dosage: 84 TABLETS
     Route: 048
     Dates: start: 20090401, end: 20140815
  3. D-CURE (COLECALCIFEROL) [Concomitant]
  4. BISOPROLOL [Suspect]
     Active Substance: BISOPROLOL
     Indication: CARDIAC FAILURE
     Dates: start: 201403
  5. LISINOPRIL (LISINOPRIL) [Concomitant]
     Active Substance: LISINOPRIL
  6. BEFACT FORTE (CYANOCOBALAMIN + PYRIDOXINE HYDROCHLORIDE + RIBOFLAVIN + THIAMINE HYDROCHLORIDE) [Concomitant]
  7. ZESTRIL [Suspect]
     Active Substance: LISINOPRIL
     Indication: PRODUCT USED FOR UNKNOWN INDICATION
  8. MAGNESIUM (MAGNESIUM) [Concomitant]
     Active Substance: MAGNESIUM
  9. ASAFLOW (ACETYLSALICYLIC ACID) [Concomitant]

REACTIONS (7)
  - Muscular weakness [None]
  - Arthralgia [None]
  - Psoriatic arthropathy [None]
  - Gait disturbance [None]
  - Neuralgia [None]
  - Paraesthesia [None]
  - Myalgia [None]

NARRATIVE: CASE EVENT DATE: 20140615
